FAERS Safety Report 5754975-9 (Version None)
Quarter: 2008Q2

REPORT INFORMATION
  Report Type: 
  Country: None (occurrence: None)
  Receive Date: 20080602
  Receipt Date: 20080526
  Transmission Date: 20081010
  Serious: Yes (Other)
  Sender: FDA-Public Use
  Company Number: GR-ELI_LILLY_AND_COMPANY-GR200805005160

PATIENT
  Age: 42 Year
  Sex: Female

DRUGS (5)
  1. ZYPREXA [Suspect]
     Indication: OBSESSIVE-COMPULSIVE PERSONALITY DISORDER
     Dosage: 5 MG, DAILY (1/D)
     Route: 048
     Dates: start: 20080520, end: 20080522
  2. SIRDALUD [Concomitant]
     Indication: MUSCLE RELAXANT THERAPY
     Dosage: UNK , DAILY (1/D)
     Route: 048
  3. NOZINAN /00038602/ [Concomitant]
     Indication: OBSESSIVE-COMPULSIVE PERSONALITY DISORDER
     Dosage: 25 MG, DAILY (1/D)
     Route: 048
  4. STEDON [Concomitant]
     Indication: INSOMNIA
     Dosage: 5 MG, DAILY (1/D)
     Route: 048
  5. EFFEXOR [Concomitant]
     Indication: DEPRESSION
     Dosage: 75 MG, DAILY (1/D)
     Route: 048
     Dates: start: 20080520, end: 20080521

REACTIONS (1)
  - ECCHYMOSIS [None]
